FAERS Safety Report 7823008-2 (Version None)
Quarter: 2011Q4

REPORT INFORMATION
  Report Type: 
  Country: None (occurrence: None)
  Receive Date: 20111018
  Receipt Date: 20100831
  Transmission Date: 20120403
  Serious: No
  Sender: FDA-Public Use
  Company Number: US-ASTRAZENECA-2010SE40859

PATIENT
  Age: 86 Year
  Sex: Female
  Weight: 46.7 kg

DRUGS (3)
  1. CALCIUM WITH VITAMIN D [Concomitant]
  2. TRANXENE [Concomitant]
  3. SYMBICORT [Suspect]
     Dosage: 80/4.5 MCG TWO TIMES A DAY
     Route: 055
     Dates: start: 20100827

REACTIONS (2)
  - VISION BLURRED [None]
  - INCORRECT DOSE ADMINISTERED [None]
